FAERS Safety Report 12323838 (Version 3)
Quarter: 2016Q2

REPORT INFORMATION
  Report Type: Report from Study
  Country: GB (occurrence: GB)
  Receive Date: 20160502
  Receipt Date: 20160630
  Transmission Date: 20160815
  Serious: Yes (Hospitalization)
  Sender: FDA-Public Use
  Company Number: GB-VERTEX PHARMACEUTICALS-2016-002259

PATIENT
  Age: 40 Year
  Sex: Female

DRUGS (31)
  1. AZTREONAM. [Concomitant]
     Active Substance: AZTREONAM
     Dosage: 2 G, UNK
     Route: 042
     Dates: start: 201604
  2. MONTELUKAST [Concomitant]
     Active Substance: MONTELUKAST SODIUM
     Dosage: 10 MG, QD
  3. SALBUTAMOL [Concomitant]
     Active Substance: ALBUTEROL
     Dosage: UNK, PRN
  4. ORKAMBI [Suspect]
     Active Substance: IVACAFTOR\LUMACAFTOR
     Indication: CYSTIC FIBROSIS
     Dosage: 2 DF, BID
     Route: 048
     Dates: start: 20160223, end: 20160404
  5. HYDROXYCHLOROQUINE [Concomitant]
     Active Substance: HYDROXYCHLOROQUINE
     Dosage: 200 MG, QD
  6. PREDNISOLONE. [Concomitant]
     Active Substance: PREDNISOLONE
     Dosage: 20 MG, DAILY, FOR TWO WEEKS
     Dates: start: 201604
  7. MEGESTROL [Concomitant]
     Active Substance: MEGESTROL
     Dosage: 160 MG, QD
  8. LAXIDO [Concomitant]
     Active Substance: POLYETHYLENE GLYCOL 3350\POTASSIUM CHLORIDE\SODIUM BICARBONATE\SODIUM CHLORIDE
     Dosage: UNK, PRN
  9. CREON [Concomitant]
     Active Substance: PANCRELIPASE AMYLASE\PANCRELIPASE LIPASE\PANCRELIPASE PROTEASE
     Dosage: 5 WITH SNACKS, 7-12 WITH MEALS, 6 WITH FEED, PRN
  10. COLOMYCIN [Concomitant]
     Active Substance: COLISTIN
     Dosage: UNK, BID, ALTERNATE MONTHS
  11. TOBI [Concomitant]
     Active Substance: TOBRAMYCIN
     Dosage: UNK, BID
  12. SERETIDE [Concomitant]
     Active Substance: FLUTICASONE PROPIONATE\SALMETEROL XINAFOATE
     Dosage: 2 PUFFS, BID
  13. LEVEMIR [Concomitant]
     Active Substance: INSULIN DETEMIR
     Dosage: 26 UNITS A.M. - 18 UNITS P.M
  14. COCODAMOL [Concomitant]
     Active Substance: ACETAMINOPHEN\CODEINE PHOSPHATE
  15. MOMETASONE [Concomitant]
     Active Substance: MOMETASONE
     Dosage: UNK, BID
     Route: 045
  16. MULTIVITAMINS [Concomitant]
     Active Substance: VITAMINS
     Dosage: 3 DF, QD
  17. FERROUS FUMARATE [Concomitant]
     Active Substance: FERROUS FUMARATE
  18. AZTREONAM. [Concomitant]
     Active Substance: AZTREONAM
     Dosage: 75 MG, TID
  19. AZITHROMYCIN ANHYDROUS. [Concomitant]
     Active Substance: AZITHROMYCIN ANHYDROUS
     Dosage: 500 MG, QD, MWF
  20. FLUCLOXACILLIN [Concomitant]
     Active Substance: FLUCLOXACILLIN
     Dosage: 500 MG, BID
  21. HUMULIN NOS [Concomitant]
     Active Substance: INSULIN HUMAN
     Dosage: 52 UNITS WITH OVERNIGHT FEEDS
  22. OMEPRAZOLE. [Concomitant]
     Active Substance: OMEPRAZOLE
     Dosage: 40 MG, BID
  23. OLANZAPINE. [Concomitant]
     Active Substance: OLANZAPINE
     Dosage: 5 MG, QD
  24. TOBI [Concomitant]
     Active Substance: TOBRAMYCIN
     Dosage: 160 MG, BID
     Route: 042
     Dates: start: 201604
  25. DNASE [Concomitant]
     Active Substance: DEOXYRIBONUCLIEC ACID
     Dosage: 2.5 MG, QD
  26. VITAMIN E [Concomitant]
     Active Substance: .ALPHA.-TOCOPHEROL
     Dosage: 200 UT, QD
  27. NOVORAPID [Concomitant]
     Active Substance: INSULIN ASPART
     Dosage: 8-14 UNITS WITH MEALS
  28. CETIRIZINE [Concomitant]
     Active Substance: CETIRIZINE HYDROCHLORIDE
     Dosage: 10 MG, QD
  29. N-ACETYLCYSTEINE [Concomitant]
     Active Substance: ACETYLCYSTEINE
     Dosage: 60 MG, BID
  30. TIOTROPIUM [Concomitant]
     Active Substance: TIOTROPIUM
     Dosage: 18 ?G, QD
  31. MICROGYNON [Concomitant]
     Active Substance: ETHINYL ESTRADIOL\LEVONORGESTREL ACETATE

REACTIONS (2)
  - Nausea [Recovered/Resolved]
  - Decreased appetite [Recovered/Resolved]

NARRATIVE: CASE EVENT DATE: 20160316
